FAERS Safety Report 7514238-8 (Version None)
Quarter: 2011Q2

REPORT INFORMATION
  Report Type: 
  Country: None (occurrence: None)
  Receive Date: 20110531
  Receipt Date: 20110526
  Transmission Date: 20111010
  Serious: Yes (Other)
  Sender: FDA-Public Use
  Company Number: IT-BRISTOL-MYERS SQUIBB COMPANY-15781024

PATIENT
  Sex: Male

DRUGS (1)
  1. ENTECAVIR [Suspect]
     Indication: HEPATITIS B

REACTIONS (3)
  - TRANSAMINASES INCREASED [None]
  - ACIDOSIS [None]
  - HEPATITIS B DNA INCREASED [None]
